FAERS Safety Report 9451129 (Version 1)
Quarter: 2013Q3

REPORT INFORMATION
  Report Type: Spontaneous
  Country: RO (occurrence: RO)
  Receive Date: 20130809
  Receipt Date: 20130809
  Transmission Date: 20140515
  Serious: Yes (Other)
  Sender: FDA-Public Use
  Company Number: RO-TEVA-424650ISR

PATIENT
  Age: 29 Year
  Sex: Female

DRUGS (2)
  1. CARBAMAZEPINE [Suspect]
     Indication: PARTIAL SEIZURES
     Dosage: .4 GRAM DAILY; SINCE 16 YEARS OF AGE
  2. PHENOBARBITAL [Interacting]
     Indication: PARTIAL SEIZURES
     Dosage: .1 GRAM DAILY; SINCE 16 YEARS OF AGE
     Route: 064

REACTIONS (2)
  - Stillbirth [Unknown]
  - Potentiating drug interaction [Unknown]
